FAERS Safety Report 4763462-6 (Version None)
Quarter: 2005Q3

REPORT INFORMATION
  Report Type: 
  Country: None (occurrence: None)
  Receive Date: 20050908
  Receipt Date: 20050726
  Transmission Date: 20060218
  Serious: Yes (Hospitalization)
  Sender: FDA-Public Use
  Company Number: CA-AMGEN-US144324

PATIENT
  Sex: Male

DRUGS (8)
  1. ENBREL [Suspect]
     Indication: RHEUMATOID ARTHRITIS
     Route: 058
     Dates: start: 20041207
  2. ARAVA [Concomitant]
     Route: 048
     Dates: start: 20030504
  3. LOPRESSOR [Concomitant]
     Route: 048
     Dates: start: 20030519
  4. NORVASC [Concomitant]
     Route: 048
     Dates: start: 20030519
  5. ENTROPHEN [Concomitant]
     Dates: start: 20030519
  6. COVERSYL [Concomitant]
     Route: 048
     Dates: start: 20030519
  7. CELEBREX [Concomitant]
     Route: 048
     Dates: start: 20030904
  8. CALCIUM WITH VITAMIN D [Concomitant]
     Route: 048
     Dates: start: 20030830

REACTIONS (1)
  - PNEUMONIA [None]
